FAERS Safety Report 5217224-6 (Version None)
Quarter: 2007Q1

REPORT INFORMATION
  Report Type: 
  Country: None (occurrence: None)
  Receive Date: 20070124
  Receipt Date: 20070117
  Transmission Date: 20070707
  Serious: Yes (Life-Threatening)
  Sender: FDA-Public Use
  Company Number: US-MERCK-0612USA03676

PATIENT
  Age: 78 Year
  Sex: Male
  Weight: 78 kg

DRUGS (6)
  1. JANUVIA [Suspect]
     Indication: DIABETES MELLITUS
     Route: 048
     Dates: start: 20061129, end: 20061202
  2. LIPITOR [Concomitant]
     Indication: BLOOD CHOLESTEROL INCREASED
     Route: 048
  3. VASOTEC [Concomitant]
     Route: 048
  4. HYTRIN [Concomitant]
     Route: 048
  5. PLAVIX [Concomitant]
     Route: 048
  6. TOPROL-XL [Concomitant]
     Route: 048

REACTIONS (2)
  - MENTAL STATUS CHANGES [None]
  - ROAD TRAFFIC ACCIDENT [None]
